FAERS Safety Report 8534550 (Version 2)
Quarter: 2013Q2

REPORT INFORMATION
  Report Type: Spontaneous
  Country: US (occurrence: None)
  Receive Date: 20120327
  Receipt Date: 20120709
  Transmission Date: 20140414
  Serious: Yes (Death)
  Sender: FDA-Public Use
  Company Number: PHHY2011US14143

PATIENT
  Age: 83 Year
  Sex: Female
  Weight: 72.8 kg

DRUGS (6)
  1. GLEEVEC [Suspect]
     Indication: CHRONIC MYELOID LEUKAEMIA
     Dosage: 300 MG, ORAL
     Route: 048
     Dates: start: 20100225, end: 201101
  2. ALBUTEROL (SALBUTAMOL) [Concomitant]
  3. AMIODARONE (AMIODARONE) [Concomitant]
  4. FUROSEMIDE (FUROSEMIDE) [Concomitant]
  5. LEVOTHYROXINE (LEVOTHYROXINE) [Concomitant]
  6. OMEPRAZOLE (OMEPRAZOLE) [Concomitant]

REACTIONS (1)
  - CHRONIC MYELOID LEUKAEMIA [None]
